FAERS Safety Report 14686107 (Version 1)
Quarter: 2018Q1

REPORT INFORMATION
  Report Type: Spontaneous
  Country: US (occurrence: US)
  Receive Date: 20180326
  Receipt Date: 20180326
  Transmission Date: 20180509
  Serious: Yes (Life-Threatening, Disabling, Other)
  Sender: FDA-Public Use
  Company Number: None

PATIENT
  Age: 63 Year
  Sex: Male
  Weight: 92.25 kg

DRUGS (4)
  1. PROBIOTIC [Concomitant]
     Active Substance: PROBIOTICS NOS
  2. MULTIVITIMIN [Concomitant]
     Active Substance: VITAMINS
  3. DEPO-MEDROL [Suspect]
     Active Substance: METHYLPREDNISOLONE ACETATE
     Dosage: ?          QUANTITY:80 MG;OTHER FREQUENCY:ONCE;OTHER ROUTE:EPIDURAL?
     Route: 008
  4. FIBER [Concomitant]
     Active Substance: PSYLLIUM HUSK

REACTIONS (6)
  - Injection site pain [None]
  - Asthenia [None]
  - Hallucination [None]
  - Pyrexia [None]
  - Flushing [None]
  - Abnormal dreams [None]

NARRATIVE: CASE EVENT DATE: 20180315
